FAERS Safety Report 14609759 (Version 1)
Quarter: 2018Q1

REPORT INFORMATION
  Report Type: Spontaneous
  Country: US (occurrence: US)
  Receive Date: 20180307
  Receipt Date: 20180307
  Transmission Date: 20180509
  Serious: Yes (Disabling)
  Sender: FDA-Public Use
  Company Number: None

PATIENT
  Age: 45 Year
  Sex: Female
  Weight: 79.2 kg

DRUGS (7)
  1. METHYLPHENIDATE ER 54 MG TAB [Suspect]
     Active Substance: METHYLPHENIDATE HYDROCHLORIDE
     Indication: ATTENTION DEFICIT/HYPERACTIVITY DISORDER
     Dosage: ?          QUANTITY:1 TABLET(S);?
     Route: 048
     Dates: start: 20180107, end: 20180307
  2. ADVIL [Concomitant]
     Active Substance: IBUPROFEN
  3. ARMOUR THYROID [Concomitant]
     Active Substance: THYROID, PORCINE
  4. CLONAZEPAM. [Concomitant]
     Active Substance: CLONAZEPAM
  5. VITAMIN D [Concomitant]
     Active Substance: CHOLECALCIFEROL
  6. CLARITIN-D NOS [Concomitant]
     Active Substance: LORATADINE\PSEUDOEPHEDRINE SULFATE
  7. CONCERTA [Concomitant]
     Active Substance: METHYLPHENIDATE HYDROCHLORIDE

REACTIONS (5)
  - Impaired work ability [None]
  - Drug ineffective [None]
  - Hypersomnia [None]
  - Product substitution issue [None]
  - Blood pressure increased [None]

NARRATIVE: CASE EVENT DATE: 20180107
